FAERS Safety Report 20232804 (Version 1)
Quarter: 2021Q4

REPORT INFORMATION
  Report Type: Report from Study
  Country: US (occurrence: US)
  Receive Date: 20211227
  Receipt Date: 20211227
  Transmission Date: 20220303
  Serious: Yes (Other)
  Sender: FDA-Public Use
  Company Number: US-BAYER-2021A270438

PATIENT
  Age: 26 Year
  Sex: Female

DRUGS (4)
  1. ASPIRIN [Suspect]
     Active Substance: ASPIRIN
  2. METOPROLOL SUCCINATE [Concomitant]
     Active Substance: METOPROLOL SUCCINATE
     Dosage: 12.5 MG, QD
  3. BUPIVACAINE [Concomitant]
     Active Substance: BUPIVACAINE
     Dosage: 9 ML
  4. BUPIVACAINE [Concomitant]
     Active Substance: BUPIVACAINE
     Dosage: 6 UNK

REACTIONS (4)
  - Preterm premature rupture of membranes [None]
  - Premature labour [None]
  - Maternal exposure during pregnancy [None]
  - Contraindicated product administered [None]
